FAERS Safety Report 9179169 (Version 2)
Quarter: 2013Q2

REPORT INFORMATION
  Report Type: Spontaneous
  Country: US (occurrence: US)
  Receive Date: 20130321
  Receipt Date: 20130402
  Transmission Date: 20140414
  Serious: Yes (Death, Hospitalization)
  Sender: FDA-Public Use
  Company Number: US-GLAXOSMITHKLINE-A1015975A

PATIENT
  Age: 68 Year
  Sex: Male

DRUGS (6)
  1. JALYN [Suspect]
     Indication: NOCTURIA
     Dosage: 1CAP PER DAY
     Route: 048
     Dates: end: 20130111
  2. PROPRANOLOL [Concomitant]
  3. PRILOSEC [Concomitant]
  4. ASPIRIN [Concomitant]
  5. MORPHINE [Concomitant]
  6. HALDOL [Concomitant]

REACTIONS (9)
  - Hepatic cirrhosis [Fatal]
  - Neoplasm malignant [Unknown]
  - Hepatic neoplasm [Unknown]
  - Hepatic cancer [Unknown]
  - Lung neoplasm malignant [Unknown]
  - Lymphoma [Unknown]
  - Therapeutic response decreased [Unknown]
  - Dysphagia [Unknown]
  - Bladder catheterisation [Unknown]
